FAERS Safety Report 6268851-9 (Version None)
Quarter: 2009Q3

REPORT INFORMATION
  Report Type: 
  Country: None (occurrence: None)
  Receive Date: 20090710
  Receipt Date: 20090710
  Transmission Date: 20100115
  Serious: Yes (Other)
  Sender: FDA-Public Use
  Company Number: None

PATIENT
  Sex: Female

DRUGS (1)
  1. TAXOL [Suspect]
     Dosage: 301ML/HR

REACTIONS (3)
  - INFUSION RELATED REACTION [None]
  - OEDEMA [None]
  - RESPIRATORY DISTRESS [None]
